FAERS Safety Report 17835743 (Version 1)
Quarter: 2020Q2

REPORT INFORMATION
  Report Type: Spontaneous
  Country: US (occurrence: US)
  Receive Date: 20200528
  Receipt Date: 20200528
  Transmission Date: 20200714
  Serious: No
  Sender: FDA-Public Use
  Company Number: US-VERTEX PHARMACEUTICALS-2020-011514

PATIENT
  Sex: Male

DRUGS (7)
  1. MONTELUKAST [Concomitant]
     Active Substance: MONTELUKAST SODIUM
  2. SERTRALINE [Concomitant]
     Active Substance: SERTRALINE HYDROCHLORIDE
  3. TOBI PODHALER [Concomitant]
     Active Substance: TOBRAMYCIN
  4. BUDESONIDE. [Concomitant]
     Active Substance: BUDESONIDE
  5. LANTUS [Concomitant]
     Active Substance: INSULIN GLARGINE
  6. TRIKAFTA [Suspect]
     Active Substance: ELEXACAFTOR\IVACAFTOR\TEZACAFTOR
     Indication: CYSTIC FIBROSIS
     Dosage: 2 TABS (100MG ELEXACAFTOR/50MG TEZACAFTOR/75MG IVACAFTOR) AM AND 1 TAB (150MG IVACAFTOR) PM
     Route: 048
     Dates: start: 20200428
  7. PULMOZYME [Concomitant]
     Active Substance: DORNASE ALFA

REACTIONS (1)
  - Headache [Recovered/Resolved]

NARRATIVE: CASE EVENT DATE: 2020
